FAERS Safety Report 8887742 (Version 1)
Quarter: 2012Q4

REPORT INFORMATION
  Report Type: 
  Country: US (occurrence: US)
  Receive Date: 20121106
  Receipt Date: 20121106
  Transmission Date: 20130627
  Serious: No
  Sender: FDA-Public Use
  Company Number: US-ASTRAZENECA-2012SE26571

PATIENT
  Age: 44 Year
  Sex: Female

DRUGS (5)
  1. ATENOLOL [Suspect]
     Indication: BLOOD PRESSURE ABNORMAL
     Route: 065
  2. NEXIUM [Suspect]
     Route: 048
  3. LASIX [Concomitant]
  4. ALPRAZOLAM [Concomitant]
  5. LORTAB [Concomitant]

REACTIONS (4)
  - Mass [Unknown]
  - Joint injury [Unknown]
  - Sleep disorder due to general medical condition, insomnia type [Unknown]
  - Dyspepsia [Unknown]
